FAERS Safety Report 14852397 (Version 3)
Quarter: 2018Q2

REPORT INFORMATION
  Report Type: Spontaneous
  Country: US (occurrence: US)
  Receive Date: 20180507
  Receipt Date: 20180628
  Transmission Date: 20180711
  Serious: No
  Sender: FDA-Public Use
  Company Number: US-PFIZER INC-2018184576

PATIENT
  Age: 52 Year
  Sex: Female
  Weight: 52.16 kg

DRUGS (1)
  1. ADVIL PM [Suspect]
     Active Substance: DIPHENHYDRAMINE CITRATE\IBUPROFEN
     Indication: SLEEP DISORDER DUE TO GENERAL MEDICAL CONDITION, INSOMNIA TYPE
     Dosage: 2 DF, SINGLE (TOOK ONE TIME ONLY)
     Dates: start: 2018, end: 2018

REACTIONS (3)
  - Drug effect incomplete [Recovered/Resolved]
  - Feeling jittery [Recovered/Resolved]
  - Feeling abnormal [Recovered/Resolved]

NARRATIVE: CASE EVENT DATE: 2018
